FAERS Safety Report 8510679 (Version 3)
Quarter: 2012Q4

REPORT INFORMATION
  Report Type: Report from Study
  Country: JP (occurrence: JP)
  Receive Date: 20120413
  Receipt Date: 20121030
  Transmission Date: 20130627
  Serious: Yes (Death, Life-Threatening, Hospitalization)
  Sender: FDA-Public Use
  Company Number: JP-ROCHE-1056894

PATIENT
  Age: 77 Year
  Sex: Male

DRUGS (4)
  1. TOCILIZUMAB [Suspect]
     Indication: RHEUMATOID ARTHRITIS
     Route: 041
     Dates: start: 20090402, end: 20110127
  2. PROGRAF [Concomitant]
     Indication: RHEUMATOID ARTHRITIS
     Route: 048
     Dates: start: 20090309
  3. PREDNISOLONE [Concomitant]
     Indication: RHEUMATOID ARTHRITIS
     Route: 048
  4. UNIPHYL [Concomitant]
     Route: 048

REACTIONS (3)
  - Pneumonia [Fatal]
  - Cerebral haemorrhage [Recovered/Resolved with Sequelae]
  - Interstitial lung disease [Recovering/Resolving]
